FAERS Safety Report 6527230-7 (Version None)
Quarter: 2010Q1

REPORT INFORMATION
  Report Type: 
  Country: None (occurrence: None)
  Receive Date: 20100104
  Receipt Date: 20100104
  Transmission Date: 20100710
  Serious: Yes (Other)
  Sender: FDA-Public Use
  Company Number: None

PATIENT
  Sex: Female
  Weight: 73.4827 kg

DRUGS (1)
  1. CIPROFLOXACIN HCL [Suspect]
     Indication: URINARY TRACT INFECTION
     Dosage: 250 MG 3 TIMES PER DAY PO
     Route: 048
     Dates: start: 20091013, end: 20091015

REACTIONS (11)
  - ARTHRALGIA [None]
  - BLEPHAROSPASM [None]
  - CARPAL TUNNEL SYNDROME [None]
  - EYE SWELLING [None]
  - HYPOAESTHESIA [None]
  - INSOMNIA [None]
  - JOINT SWELLING [None]
  - OEDEMA PERIPHERAL [None]
  - PAIN [None]
  - PARAESTHESIA [None]
  - TENDONITIS [None]
